FAERS Safety Report 5972441-2 (Version None)
Quarter: 2008Q4

REPORT INFORMATION
  Report Type: 
  Country: None (occurrence: None)
  Receive Date: 20081125
  Receipt Date: 20081112
  Transmission Date: 20090506
  Serious: Yes (Hospitalization)
  Sender: FDA-Public Use
  Company Number: 2008SP002854

PATIENT
  Age: 73 Year
  Sex: Female

DRUGS (2)
  1. ALVESCO [Suspect]
     Indication: ASTHMA
     Dosage: 640 UG;BID; INHALATION
     Route: 055
     Dates: start: 20081001, end: 20081105
  2. CORTICOSTEROID [Concomitant]

REACTIONS (4)
  - BRONCHITIS [None]
  - DRUG INEFFECTIVE [None]
  - LUNG INFECTION [None]
  - OROPHARYNGEAL PAIN [None]
